FAERS Safety Report 21630902 (Version 1)
Quarter: 2022Q4

REPORT INFORMATION
  Report Type: Report from Study
  Country: US (occurrence: US)
  Receive Date: 20221123
  Receipt Date: 20221123
  Transmission Date: 20230112
  Serious: Yes (Other)
  Sender: FDA-Public Use
  Company Number: US-BRISTOL-MYERS SQUIBB COMPANY-2022-139037

PATIENT
  Age: 63 Year
  Sex: Male
  Weight: 102.42 kg

DRUGS (6)
  1. REVLIMID [Suspect]
     Active Substance: LENALIDOMIDE
     Indication: Follicular lymphoma
     Dosage: 20 MG/1 CAP, 21 OUT OF 28 DAYS
     Route: 048
     Dates: start: 202205
  2. REVLIMID [Suspect]
     Active Substance: LENALIDOMIDE
     Indication: Neoplasm malignant
  3. OMEPRAZOLE [Concomitant]
     Active Substance: OMEPRAZOLE
     Indication: Product used for unknown indication
  4. ASPIRIN [Concomitant]
     Active Substance: ASPIRIN
     Indication: Product used for unknown indication
  5. RITUXAN [Concomitant]
     Active Substance: RITUXIMAB
     Indication: Product used for unknown indication
  6. SENNA PLUS [SENNA ALEXANDRINA] [Concomitant]
     Indication: Product used for unknown indication

REACTIONS (1)
  - COVID-19 [Unknown]
